FAERS Safety Report 8449675-0 (Version None)
Quarter: 2012Q2

REPORT INFORMATION
  Report Type: 
  Country: None (occurrence: None)
  Receive Date: 20120620
  Receipt Date: 20120614
  Transmission Date: 20120825
  Serious: No
  Sender: FDA-Public Use
  Company Number: US-PFIZER INC-2012143955

PATIENT
  Sex: Female
  Weight: 63.5 kg

DRUGS (2)
  1. COREG [Concomitant]
     Indication: HYPERTENSION
     Dosage: UNK
  2. LIPITOR [Suspect]
     Indication: BLOOD CHOLESTEROL INCREASED
     Dosage: 40 MG, 1X/DAY
     Route: 048
     Dates: start: 19990101

REACTIONS (3)
  - SKIN INDURATION [None]
  - BLISTER [None]
  - SKIN EXFOLIATION [None]
